FAERS Safety Report 7236529-0 (Version None)
Quarter: 2011Q1

REPORT INFORMATION
  Report Type: 
  Country: None (occurrence: None)
  Receive Date: 20110120
  Receipt Date: 20110112
  Transmission Date: 20110831
  Serious: Yes (Hospitalization, Other)
  Sender: FDA-Public Use
  Company Number: US-BAXTER-2011BH000569

PATIENT
  Sex: Male
  Weight: 101 kg

DRUGS (33)
  1. GAMMAGARD S/D [Suspect]
     Indication: IMMUNODEFICIENCY COMMON VARIABLE
     Route: 042
     Dates: start: 20100405, end: 20100409
  2. GAMMAGARD S/D [Suspect]
     Route: 042
     Dates: start: 20100517, end: 20100521
  3. FISH OIL [Concomitant]
     Route: 048
  4. GAMMAGARD S/D [Suspect]
     Indication: SJOGREN'S SYNDROME
     Route: 042
     Dates: start: 20100405, end: 20100409
  5. LISINOPRIL [Concomitant]
     Route: 048
  6. GAMMAGARD S/D [Suspect]
     Route: 042
     Dates: start: 20100913, end: 20100917
  7. TYLENOL [Concomitant]
     Indication: PREMEDICATION
     Route: 048
     Dates: start: 20100405, end: 20100917
  8. PERCOCET [Concomitant]
     Route: 048
  9. GAMMAGARD S/D [Suspect]
     Route: 065
     Dates: start: 20100108
  10. GAMMAGARD S/D [Suspect]
     Route: 042
     Dates: start: 20100817, end: 20100821
  11. GAMMAGARD S/D [Suspect]
     Route: 042
     Dates: start: 20100913, end: 20100917
  12. METAMUCIL-2 [Concomitant]
     Route: 048
  13. COLACE [Concomitant]
     Route: 048
  14. CLONAZEPAM [Concomitant]
     Route: 048
  15. GAMMAGARD S/D [Suspect]
     Route: 042
     Dates: start: 20100517, end: 20100521
  16. GAMMAGARD S/D [Suspect]
     Route: 065
     Dates: start: 20100108
  17. GAMMAGARD S/D [Suspect]
     Route: 042
     Dates: start: 20100913, end: 20100917
  18. SOLU-MEDROL [Concomitant]
     Indication: PREMEDICATION
     Route: 042
     Dates: start: 20100517, end: 20100917
  19. PLAQUENIL [Concomitant]
     Route: 048
  20. OXYCONTIN [Concomitant]
     Route: 048
  21. MULTI-VITAMINS [Concomitant]
     Route: 048
  22. AMBIEN [Concomitant]
     Route: 048
  23. GAMMAGARD S/D [Suspect]
     Indication: PRIMARY IMMUNODEFICIENCY SYNDROME
     Route: 042
     Dates: start: 20100405, end: 20100409
  24. GAMMAGARD S/D [Suspect]
     Route: 042
     Dates: start: 20100817, end: 20100821
  25. SOLU-MEDROL [Concomitant]
     Route: 042
     Dates: start: 20100406, end: 20100409
  26. CLARITIN [Concomitant]
     Indication: PREMEDICATION
     Route: 048
     Dates: start: 20100405, end: 20100409
  27. ZANTAC [Concomitant]
     Indication: PREMEDICATION
     Route: 048
     Dates: start: 20100405, end: 20100409
  28. DIPHENHYDRAMINE [Concomitant]
     Indication: PREMEDICATION
     Route: 048
     Dates: start: 20100405, end: 20100917
  29. RESTASIS [Concomitant]
  30. GAMMAGARD S/D [Suspect]
     Route: 042
     Dates: start: 20100517, end: 20100521
  31. GAMMAGARD S/D [Suspect]
     Route: 065
     Dates: start: 20100108
  32. GAMMAGARD S/D [Suspect]
     Route: 042
     Dates: start: 20100817, end: 20100821
  33. OMEPRAZOLE [Concomitant]
     Route: 048

REACTIONS (15)
  - PRURITUS [None]
  - FEELING COLD [None]
  - MUSCULOSKELETAL STIFFNESS [None]
  - EYE MOVEMENT DISORDER [None]
  - TREMOR [None]
  - PHOTOSENSITIVITY REACTION [None]
  - FLANK PAIN [None]
  - NAUSEA [None]
  - VOMITING [None]
  - MENINGITIS ASEPTIC [None]
  - PYREXIA [None]
  - APHASIA [None]
  - HEADACHE [None]
  - COLD SWEAT [None]
  - ASTHENIA [None]
